FAERS Safety Report 20151130 (Version 1)
Quarter: 2021Q4

REPORT INFORMATION
  Report Type: Spontaneous
  Country: CA (occurrence: CA)
  Receive Date: 20211206
  Receipt Date: 20211206
  Transmission Date: 20220303
  Serious: Yes (Other)
  Sender: FDA-Public Use
  Company Number: CA-NOVARTISPH-NVSC2021CA272220

PATIENT
  Age: 62 Year
  Sex: Male

DRUGS (5)
  1. DEXAMETHASONE [Suspect]
     Active Substance: DEXAMETHASONE
     Indication: Prostate cancer metastatic
     Dosage: 0.5 MG, BID
     Route: 065
     Dates: start: 201505
  2. DEXAMETHASONE [Suspect]
     Active Substance: DEXAMETHASONE
     Dosage: 0.5 MG, QD
     Route: 065
  3. PREDNISONE [Concomitant]
     Active Substance: PREDNISONE
     Indication: Prostate cancer metastatic
     Dosage: 15 MG
     Route: 065
  4. PREDNISONE [Concomitant]
     Active Substance: PREDNISONE
     Dosage: 5 MG, QD
     Route: 065
  5. ZYTIGA [Concomitant]
     Active Substance: ABIRATERONE ACETATE
     Indication: Prostate cancer metastatic
     Dosage: 1000 MG, QD
     Route: 065

REACTIONS (9)
  - Withdrawal syndrome [Unknown]
  - Diabetes mellitus inadequate control [Unknown]
  - Metastases to pituitary gland [Unknown]
  - Prostate cancer metastatic [Unknown]
  - Malignant neoplasm progression [Unknown]
  - Blood pressure increased [Unknown]
  - Insomnia [Unknown]
  - Cushingoid [Unknown]
  - Product use in unapproved indication [Unknown]

NARRATIVE: CASE EVENT DATE: 20151001
